FAERS Safety Report 8782011 (Version 1)
Quarter: 2012Q4

REPORT INFORMATION
  Report Type: 
  Country: US (occurrence: US)
  Receive Date: 20120913
  Receipt Date: 20120913
  Transmission Date: 20130627
  Serious: No
  Sender: FDA-Public Use
  Company Number: US-VERTEX PHARMACEUTICAL INC.-AE-2012-008703

PATIENT

DRUGS (8)
  1. INCIVEK [Suspect]
     Indication: HEPATITIS C
     Route: 048
     Dates: start: 20120426, end: 20120607
  2. RIBAVIRIN [Concomitant]
     Indication: HEPATITIS C
     Route: 048
     Dates: start: 20120426, end: 20120607
  3. PEGASYS [Concomitant]
     Indication: HEPATITIS C
     Route: 048
     Dates: start: 20120426, end: 20120607
  4. LITHIUM [Concomitant]
     Indication: BIPOLAR DISORDER
     Route: 048
  5. CELEXA [Concomitant]
     Indication: DEPRESSION
     Route: 048
  6. SEROQUEL [Concomitant]
     Indication: BIPOLAR DISORDER
     Route: 048
  7. OMEPRAZOLE [Concomitant]
     Indication: GASTROOESOPHAGEAL REFLUX DISEASE
     Route: 048
  8. BENADRYL [Concomitant]
     Indication: PRURITUS

REACTIONS (3)
  - White blood cell count decreased [Not Recovered/Not Resolved]
  - Rash pruritic [Not Recovered/Not Resolved]
  - Blister [Not Recovered/Not Resolved]
